FAERS Safety Report 12095498 (Version 5)
Quarter: 2021Q4

REPORT INFORMATION
  Report Type: Spontaneous
  Country: GB (occurrence: GB)
  Receive Date: 20160219
  Receipt Date: 20211215
  Transmission Date: 20220304
  Serious: Yes (Other)
  Sender: FDA-Public Use
  Company Number: GB-ABBVIE-16P-167-1564993-00

PATIENT
  Age: 75 Year
  Sex: Female

DRUGS (2)
  1. VALPROATE SODIUM [Suspect]
     Active Substance: VALPROATE SODIUM
     Indication: Temporal lobe epilepsy
     Dosage: 400 MG IN THE MORNING AND 1200 MG AT NIGHT
     Route: 048
  2. CLOBAZAM [Suspect]
     Active Substance: CLOBAZAM
     Indication: Temporal lobe epilepsy
     Route: 065

REACTIONS (13)
  - Somnambulism [Not Recovered/Not Resolved]
  - Fall [Unknown]
  - Lip swelling [Unknown]
  - Eye contusion [Unknown]
  - Gingival pain [Unknown]
  - Oral pain [Unknown]
  - Gingival bleeding [Unknown]
  - Limb asymmetry [Unknown]
  - Sleep disorder [Not Recovered/Not Resolved]
  - Amnesia [Not Recovered/Not Resolved]
  - Epilepsy [Unknown]
  - Seizure [Unknown]
  - Alopecia [Unknown]
